FAERS Safety Report 5370999-8 (Version None)
Quarter: 2007Q2

REPORT INFORMATION
  Report Type: 
  Country: None (occurrence: None)
  Receive Date: 20070626
  Receipt Date: 20070613
  Transmission Date: 20071010
  Serious: Yes (Other)
  Sender: FDA-Public Use
  Company Number: CA-ELI_LILLY_AND_COMPANY-CA200706003340

PATIENT
  Sex: Female

DRUGS (12)
  1. FORTEO [Suspect]
     Indication: OSTEOPOROSIS
     Dosage: 20 UG, DAILY (1/D)
     Route: 058
     Dates: start: 20070514
  2. DOXEPIN HCL [Concomitant]
     Dosage: 50 MG, UNKNOWN
  3. EFFEXOR [Concomitant]
     Dosage: 75 MG, UNKNOWN
  4. CLONAZEPAM [Concomitant]
     Dosage: 0.5 MG, 2/D
  5. DOMPERIDONE [Concomitant]
     Dosage: 10 MG, UNKNOWN
  6. PARIET [Concomitant]
     Dosage: 10 MG, 2/D
  7. ELTROXIN [Concomitant]
     Dosage: 1 MG, UNKNOWN
  8. MELOXICAM [Concomitant]
     Dosage: 7.5 MG, UNKNOWN
  9. ACETAMINOPHEN [Concomitant]
     Dosage: UNK, AS NEEDED
  10. CALCIUM CHLORIDE [Concomitant]
  11. VITAMIN D [Concomitant]
  12. MULTI-VITAMIN [Concomitant]

REACTIONS (3)
  - AORTIC STENOSIS [None]
  - DYSPNOEA [None]
  - PAIN IN EXTREMITY [None]
